FAERS Safety Report 6504772-1 (Version None)
Quarter: 2009Q4

REPORT INFORMATION
  Report Type: 
  Country: None (occurrence: None)
  Receive Date: 20091218
  Receipt Date: 20091204
  Transmission Date: 20100525
  Serious: Yes (Other)
  Sender: FDA-Public Use
  Company Number: US-BAYER-200923610NA

PATIENT
  Age: 16 Year
  Sex: Female

DRUGS (6)
  1. BETASERON [Suspect]
     Indication: RELAPSING-REMITTING MULTIPLE SCLEROSIS
     Route: 058
     Dates: start: 20081113
  2. BETASERON [Suspect]
     Dosage: TOTAL DAILY DOSE: 6 MIU
     Route: 058
     Dates: start: 20090301
  3. BETASERON [Suspect]
     Dosage: TOTAL DAILY DOSE: 8 MIU
     Route: 058
  4. BETASERON [Suspect]
     Dosage: TOTAL DAILY DOSE: 8 MIU
     Route: 058
     Dates: start: 20090826
  5. ADVIL [Concomitant]
  6. TYLENOL (CAPLET) [Concomitant]

REACTIONS (16)
  - ANXIETY [None]
  - ANXIETY DISORDER [None]
  - BLINDNESS [None]
  - DEPRESSED MOOD [None]
  - DEPRESSION [None]
  - DRY MOUTH [None]
  - HEADACHE [None]
  - HEPATIC FUNCTION ABNORMAL [None]
  - HYPOAESTHESIA [None]
  - INJECTION SITE PAIN [None]
  - MIGRAINE [None]
  - MULTIPLE SCLEROSIS [None]
  - PALPITATIONS [None]
  - PARAESTHESIA [None]
  - SUICIDAL IDEATION [None]
  - WISDOM TEETH REMOVAL [None]
